FAERS Safety Report 8842180 (Version 1)
Quarter: 2012Q4

REPORT INFORMATION
  Report Type: 
  Country: MX (occurrence: MX)
  Receive Date: 20121016
  Receipt Date: 20121016
  Transmission Date: 20130627
  Serious: Yes (Other)
  Sender: FDA-Public Use
  Company Number: PHHY2012MX091160

PATIENT
  Age: 24 Year
  Sex: Male

DRUGS (3)
  1. MYFORTIC [Suspect]
     Indication: RENAL DISORDER
     Dosage: 4 DF, daily
  2. DIOVAN [Concomitant]
     Indication: BLOOD PRESSURE
     Dosage: 1 DF, daily
     Dates: start: 2010
  3. ERYTHROPOIETIN [Concomitant]
     Indication: ANAEMIA
     Dosage: 2000 U, QW3

REACTIONS (1)
  - Protein urine present [Not Recovered/Not Resolved]
